FAERS Safety Report 18593317 (Version 6)
Quarter: 2021Q3

REPORT INFORMATION
  Report Type: Spontaneous
  Country: US (occurrence: US)
  Receive Date: 20201209
  Receipt Date: 20210803
  Transmission Date: 20211014
  Serious: Yes (Hospitalization, Other)
  Sender: FDA-Public Use
  Company Number: US-HIKMA PHARMACEUTICALS USA INC.-US-H14001-20-05437

PATIENT
  Sex: Female

DRUGS (8)
  1. CAPECITABINE. [Suspect]
     Active Substance: CAPECITABINE
     Indication: PRODUCT USED FOR UNKNOWN INDICATION
     Dosage: UNKNOWN
     Route: 065
  2. DEXAMETHASONE. [Suspect]
     Active Substance: DEXAMETHASONE
     Indication: PRODUCT USED FOR UNKNOWN INDICATION
     Dosage: UNKNOWN
     Route: 065
  3. TUKYSA [Suspect]
     Active Substance: TUCATINIB
     Dosage: UNKNOWN
     Route: 065
  4. TUKYSA [Suspect]
     Active Substance: TUCATINIB
     Dosage: UNKNOWN
     Route: 065
  5. TUKYSA [Suspect]
     Active Substance: TUCATINIB
     Dosage: UNKNOWN
     Route: 065
  6. TUKYSA [Suspect]
     Active Substance: TUCATINIB
     Dosage: UNKNOWN
     Route: 065
  7. TUKYSA [Suspect]
     Active Substance: TUCATINIB
     Indication: BREAST CANCER
     Dosage: UNKNOWN
     Route: 065
  8. TUKYSA [Suspect]
     Active Substance: TUCATINIB
     Dosage: UNKNOWN
     Route: 065

REACTIONS (21)
  - Weight increased [Unknown]
  - Balance disorder [Unknown]
  - Noninfective encephalitis [Unknown]
  - Hepatic function abnormal [Unknown]
  - Liver injury [Unknown]
  - Weight decreased [Unknown]
  - Diarrhoea [Unknown]
  - Joint injury [Unknown]
  - Loss of consciousness [Unknown]
  - Depressed mood [Unknown]
  - Cushingoid [Unknown]
  - Tumour hyperprogression [Unknown]
  - Hyponatraemia [Unknown]
  - Haemoglobin decreased [Unknown]
  - Fatigue [Unknown]
  - Insomnia [Unknown]
  - Platelet count increased [Unknown]
  - Mean platelet volume decreased [Unknown]
  - Infection [Unknown]
  - Fall [Unknown]
  - Urinary tract infection [Unknown]
